FAERS Safety Report 9067122 (Version 2)
Quarter: 2013Q1

REPORT INFORMATION
  Report Type: Spontaneous
  Country: JP (occurrence: JP)
  Receive Date: 20130214
  Receipt Date: 20130329
  Transmission Date: 20140127
  Serious: Yes (Death)
  Sender: FDA-Public Use
  Company Number: JP-009507513-1302JPN004462

PATIENT
  Age: 68 Year
  Sex: Male

DRUGS (4)
  1. CANCIDAS [Suspect]
     Dosage: DAILY DOSAGE UNKNOWN
     Route: 041
     Dates: start: 20120709, end: 20120723
  2. CUBICIN IV 350MG [Concomitant]
     Dosage: DAILY DOSAGE UNKNOWN
     Route: 041
     Dates: start: 20120714
  3. MEROPENEM [Concomitant]
     Dosage: DAILY DOSAGE UNKNOWN
     Route: 065
     Dates: start: 20120709
  4. PREDNISOLONE [Concomitant]
     Indication: PYREXIA
     Dosage: 40 MG, DIVIDED DOSE FREQUENCY U
     Route: 065
     Dates: start: 20120709

REACTIONS (2)
  - Trichosporon infection [Fatal]
  - Febrile neutropenia [None]
